FAERS Safety Report 15540995 (Version 2)
Quarter: 2018Q4

REPORT INFORMATION
  Report Type: Spontaneous
  Country: JP (occurrence: JP)
  Receive Date: 20181023
  Receipt Date: 20181026
  Transmission Date: 20190205
  Serious: Yes (Other)
  Sender: FDA-Public Use
  Company Number: PHJP2018JP017939

PATIENT
  Sex: Female
  Weight: 70 kg

DRUGS (1)
  1. EXELON [Suspect]
     Active Substance: RIVASTIGMINE TARTRATE
     Indication: DEMENTIA
     Dosage: 1.9 MG, QD (PATCH 2.5 CM2)
     Route: 062

REACTIONS (6)
  - Pyrexia [Unknown]
  - Diarrhoea [Unknown]
  - Altered state of consciousness [Unknown]
  - Cholinergic syndrome [Unknown]
  - Vomiting [Unknown]
  - Dyspnoea [Unknown]
